FAERS Safety Report 8966477 (Version 1)
Quarter: 2012Q4

REPORT INFORMATION
  Report Type: 
  Country: JP (occurrence: JP)
  Receive Date: 20121214
  Receipt Date: 20121214
  Transmission Date: 20130627
  Serious: Yes (Other)
  Sender: FDA-Public Use
  Company Number: JP-BAXTER-2012BAX027287

PATIENT
  Age: 62 Year
  Sex: Female

DRUGS (4)
  1. ENDOXAN [Suspect]
     Indication: ACUTE LYMPHOBLASTIC LEUKEMIA
     Route: 065
     Dates: start: 201105
  2. VINCRISTINE [Suspect]
     Indication: ACUTE LYMPHOBLASTIC LEUKEMIA
     Route: 065
     Dates: start: 201105
  3. ADRIAMYCIN [Suspect]
     Indication: ACUTE LYMPHOBLASTIC LEUKEMIA
     Route: 065
     Dates: start: 201105
  4. PREDNISOLONE [Suspect]
     Indication: ACUTE LYMPHOBLASTIC LEUKEMIA
     Route: 065
     Dates: start: 201105

REACTIONS (6)
  - Posterior reversible encephalopathy syndrome [Recovered/Resolved]
  - Febrile neutropenia [Recovered/Resolved]
  - Stevens-Johnson syndrome [Recovered/Resolved]
  - Sepsis [Recovered/Resolved]
  - Hypertension [Recovered/Resolved]
  - Cerebral haemorrhage [Recovered/Resolved]
